FAERS Safety Report 18242047 (Version 1)
Quarter: 2020Q3

REPORT INFORMATION
  Report Type: Spontaneous
  Country: US (occurrence: US)
  Receive Date: 20200908
  Receipt Date: 20200908
  Transmission Date: 20201103
  Serious: Yes (Hospitalization, Other)
  Sender: FDA-Public Use
  Company Number: US-GLAXOSMITHKLINE-US2020AMR177962

PATIENT
  Sex: Female

DRUGS (1)
  1. NIRAPARIB [Suspect]
     Active Substance: NIRAPARIB
     Indication: LUNG NEOPLASM MALIGNANT
     Dosage: UNK
     Dates: start: 201912

REACTIONS (7)
  - Urinary tract infection [Unknown]
  - Unevaluable event [Unknown]
  - Balance disorder [Unknown]
  - Product use in unapproved indication [Unknown]
  - Disability [Unknown]
  - Vision blurred [Unknown]
  - Coordination abnormal [Unknown]
